FAERS Safety Report 8031270-9 (Version None)
Quarter: 2012Q1

REPORT INFORMATION
  Report Type: 
  Country: None (occurrence: None)
  Receive Date: 20120109
  Receipt Date: 20120103
  Transmission Date: 20120608
  Serious: Yes (Hospitalization)
  Sender: FDA-Public Use
  Company Number: US-GLAXOSMITHKLINE-A0775121A

PATIENT
  Age: 56 Year
  Sex: Male

DRUGS (1)
  1. AVANDIA [Suspect]
     Indication: DIABETES MELLITUS
     Dosage: 4MG TWICE PER DAY
     Route: 048
     Dates: end: 20030101

REACTIONS (11)
  - BACK DISORDER [None]
  - OEDEMA [None]
  - DIABETES MELLITUS [None]
  - LUNG DISORDER [None]
  - CARDIAC DISORDER [None]
  - WEIGHT INCREASED [None]
  - CORONARY ARTERY OCCLUSION [None]
  - HEADACHE [None]
  - ANAEMIA [None]
  - LOSS OF CONSCIOUSNESS [None]
  - NAUSEA [None]
